FAERS Safety Report 6481170-0 (Version None)
Quarter: 2009Q4

REPORT INFORMATION
  Report Type: 
  Country: None (occurrence: None)
  Receive Date: 20091208
  Receipt Date: 20091203
  Transmission Date: 20100525
  Serious: Yes (Other)
  Sender: FDA-Public Use
  Company Number: DE-WYE-G04711409

PATIENT
  Age: 61 Year
  Sex: Male
  Weight: 75 kg

DRUGS (3)
  1. BENEFIX [Suspect]
     Indication: FACTOR IX DEFICIENCY
     Dosage: 3000 IU 2X PER WEEK, UNKNOWN IF PERMANENTLY OR TEMP. DISCONTINUED
     Route: 042
     Dates: start: 19991101, end: 20000101
  2. BENEFIX [Suspect]
     Dosage: SPORADICALLY IN SCOPE OF SURGICAL PROCEDURES, 2000 - 3000 IU DAILY
     Route: 042
     Dates: start: 20000101, end: 20070301
  3. BENEFIX [Suspect]
     Dosage: DOSE UNKNOWN, UNKNOWN IF THERAPY PERMANENTLY OR TEMP. DISCONTINUED
     Route: 042
     Dates: start: 20080501

REACTIONS (2)
  - BASAL CELL CARCINOMA [None]
  - INGUINAL HERNIA [None]
